FAERS Safety Report 20941412 (Version 1)
Quarter: 2022Q2

REPORT INFORMATION
  Report Type: Spontaneous
  Country: CO (occurrence: CO)
  Receive Date: 20220610
  Receipt Date: 20220610
  Transmission Date: 20220721
  Serious: Yes (Other)
  Sender: FDA-Public Use
  Company Number: CO-AMGEN-COLSP2020165319

PATIENT
  Age: 57 Year
  Sex: Female
  Weight: 65 kg

DRUGS (17)
  1. BEVACIZUMAB [Suspect]
     Active Substance: BEVACIZUMAB
     Indication: Adenocarcinoma of colon
     Dosage: 315 MILLIGRAM, INFUSION FOR 60 MINUTES
     Route: 042
     Dates: start: 20190508
  2. BEVACIZUMAB [Suspect]
     Active Substance: BEVACIZUMAB
     Dosage: 525 MILLIGRAM DAY 1
     Route: 042
     Dates: start: 20210401
  3. PEGFILGRASTIM [Suspect]
     Active Substance: PEGFILGRASTIM
     Indication: Adenocarcinoma of colon
     Dosage: 6MG/ 0.6ML INJ SOL ON BODY INJECTOR OBI, EVERY 24 HOUR (S) FOR 1 DAY
     Route: 058
     Dates: start: 20190508
  4. IRINOTECAN [Concomitant]
     Active Substance: IRINOTECAN
     Indication: Adenocarcinoma of colon
     Dosage: 302.4 MILLIGRAM, INFUSION FOR 2 HOURS
     Route: 042
     Dates: start: 20190508
  5. FLUOROURACIL [Concomitant]
     Active Substance: FLUOROURACIL
     Indication: Adenocarcinoma of colon
     Dosage: 4032 MILLIGRAM
     Dates: start: 20190508
  6. LEUCOVORIN CALCIUM [Concomitant]
     Active Substance: LEUCOVORIN CALCIUM
     Indication: Adenocarcinoma of colon
     Dosage: 672 MILLIGRAM, QD BOLUS FOR 30 MINUTES
     Route: 042
     Dates: start: 20190508
  7. FOSAPREPITANT [Concomitant]
     Active Substance: FOSAPREPITANT
     Indication: Adenocarcinoma of colon
     Dosage: 150 MILLIGRAM, QD
     Route: 042
     Dates: start: 20190508
  8. ONDANSETRON [Concomitant]
     Active Substance: ONDANSETRON
     Indication: Adenocarcinoma of colon
     Dosage: 16 MILLIGRAM FINAL VOLUME OF SOLUTION -100, QD
     Route: 042
     Dates: start: 20190508
  9. ONDANSETRON [Concomitant]
     Active Substance: ONDANSETRON
     Dosage: 8 MILLIGRAM, Q12H
     Route: 042
     Dates: start: 20190508
  10. DEXAMETHASONE [Concomitant]
     Active Substance: DEXAMETHASONE
     Indication: Adenocarcinoma of colon
     Dosage: 16 MILLIGRAM, QD
     Route: 042
     Dates: start: 20190508
  11. ATROPINE SULFATE [Concomitant]
     Active Substance: ATROPINE SULFATE
     Indication: Adenocarcinoma of colon
     Dosage: 1 MILLIGRAM PER MILLILITRE, EVERY 24 HOURS FOR 2 DAYS
     Route: 030
     Dates: start: 20190508
  12. METFORMIN\SITAGLIPTIN [Concomitant]
     Active Substance: METFORMIN\SITAGLIPTIN
     Indication: Type 2 diabetes mellitus
     Dosage: 50/850MILLIGRAM BID FOR 180 DAYS
     Route: 048
     Dates: start: 20200424
  13. INSULIN DETEMIR [Concomitant]
     Active Substance: INSULIN DETEMIR
     Indication: Type 2 diabetes mellitus
     Dosage: 100 IU
     Route: 058
     Dates: start: 20200424
  14. ATORVASTATIN [Concomitant]
     Active Substance: ATORVASTATIN
     Indication: Hypertension
     Dosage: 20 MILLIGRAM, QD FOR 180 DAYS
     Route: 048
     Dates: start: 20200424
  15. ENALAPRIL [Concomitant]
     Active Substance: ENALAPRIL
     Indication: Hypertension
     Dosage: 5 MILLIGRAM, QD FOR 180 DAYS
     Route: 048
     Dates: start: 20200424
  16. CAPECITABINE [Concomitant]
     Active Substance: CAPECITABINE
     Indication: Lung neoplasm malignant
     Dosage: 3560 MILLIGRAM ON DAYS 1-14
     Route: 048
     Dates: start: 20210401
  17. CAPECITABINE [Concomitant]
     Active Substance: CAPECITABINE
     Route: 042

REACTIONS (7)
  - Neuropathy peripheral [Unknown]
  - Therapy partial responder [Unknown]
  - Photopsia [Not Recovered/Not Resolved]
  - Nausea [Not Recovered/Not Resolved]
  - Diarrhoea [Not Recovered/Not Resolved]
  - Fatigue [Not Recovered/Not Resolved]
  - Alopecia [Not Recovered/Not Resolved]

NARRATIVE: CASE EVENT DATE: 20200915
